FAERS Safety Report 5432126-8 (Version None)
Quarter: 2007Q3

REPORT INFORMATION
  Report Type: 
  Country: None (occurrence: None)
  Receive Date: 20070830
  Receipt Date: 20070820
  Transmission Date: 20080115
  Serious: Yes (Other)
  Sender: FDA-Public Use
  Company Number: BR-ABBOTT-07P-020-0378838-00

PATIENT
  Age: 62 Year
  Sex: Female
  Weight: 78 kg

DRUGS (3)
  1. SIBUTRAMINE [Suspect]
     Indication: WEIGHT CONTROL
     Route: 048
     Dates: start: 20070501
  2. LUMIRACOXIB [Concomitant]
     Indication: ARTHRALGIA
     Route: 048
     Dates: start: 20070601, end: 20070801
  3. INDERIDE-40/25 [Concomitant]
     Indication: HYPERTENSION
     Route: 048
     Dates: start: 20020101

REACTIONS (2)
  - ARTHROPATHY [None]
  - DRUG INEFFECTIVE [None]
